FAERS Safety Report 18466544 (Version 1)
Quarter: 2020Q4

REPORT INFORMATION
  Report Type: Spontaneous
  Country: US (occurrence: US)
  Receive Date: 20201105
  Receipt Date: 20201105
  Transmission Date: 20210114
  Serious: Yes (Life-Threatening, Hospitalization, Other)
  Sender: FDA-Public Use
  Company Number: US-SUN PHARMACEUTICAL INDUSTRIES LTD-2020R1-266469

PATIENT
  Age: 51 Year
  Sex: Female

DRUGS (1)
  1. CYCLOBENZAPRINE. [Suspect]
     Active Substance: CYCLOBENZAPRINE
     Indication: PRODUCT USED FOR UNKNOWN INDICATION
     Dosage: UNK
     Route: 065

REACTIONS (11)
  - Unresponsive to stimuli [Unknown]
  - Distributive shock [Unknown]
  - Multiple organ dysfunction syndrome [Unknown]
  - Hepatic enzyme increased [Recovered/Resolved]
  - Suicide attempt [Unknown]
  - Coma scale abnormal [Unknown]
  - Overdose [Unknown]
  - Hypotension [Recovering/Resolving]
  - Acute kidney injury [Recovering/Resolving]
  - Metabolic acidosis [Not Recovered/Not Resolved]
  - Electrocardiogram QRS complex prolonged [Recovered/Resolved]
